FAERS Safety Report 5315436-4 (Version None)
Quarter: 2007Q2

REPORT INFORMATION
  Report Type: 
  Country: None (occurrence: None)
  Receive Date: 20070503
  Receipt Date: 20070420
  Transmission Date: 20071010
  Serious: Yes (Death, Hospitalization, Other)
  Sender: FDA-Public Use
  Company Number: GB-BRISTOL-MYERS SQUIBB COMPANY-13685144

PATIENT
  Age: 37 Year
  Sex: Female
  Weight: 51 kg

DRUGS (9)
  1. IPILIMUMAB [Suspect]
     Indication: MALIGNANT MELANOMA
     Route: 042
     Dates: start: 20070212, end: 20070212
  2. MDX-1379 [Suspect]
     Indication: MALIGNANT MELANOMA
     Route: 058
     Dates: start: 20070212, end: 20070212
  3. BLINDED: PLACEBO [Suspect]
     Indication: MALIGNANT MELANOMA
     Route: 042
     Dates: start: 20070212, end: 20070212
  4. VOLTAREN [Concomitant]
     Indication: PAIN
     Route: 048
     Dates: start: 20070104
  5. CO-DYDRAMOL [Concomitant]
     Indication: PAIN
     Dosage: DOSAGE FORM = 10/500 MG
     Route: 048
     Dates: start: 20061208
  6. ZOPICLONE [Concomitant]
     Indication: INSOMNIA
     Route: 048
     Dates: start: 20070212
  7. SIMPLE LINCTUS [Concomitant]
     Indication: COUGH
     Route: 048
     Dates: start: 20070201
  8. DICLOFENAC 1% GEL [Concomitant]
     Indication: PAIN
     Route: 061
     Dates: start: 20070201
  9. LANSOPRAZOLE [Concomitant]
     Indication: PROPHYLAXIS
     Route: 048
     Dates: start: 20070201

REACTIONS (2)
  - HAEMOLYTIC ANAEMIA [None]
  - MALIGNANT NEOPLASM PROGRESSION [None]
